FAERS Safety Report 9004113 (Version 1)
Quarter: 2013Q1

REPORT INFORMATION
  Report Type: Spontaneous
  Country: US (occurrence: US)
  Receive Date: 20130109
  Receipt Date: 20130109
  Transmission Date: 20140127
  Serious: No
  Sender: FDA-Public Use
  Company Number: US-BIOGENIDEC-2013BI000383

PATIENT
  Age: 57 None
  Sex: Female

DRUGS (2)
  1. TYSABRI [Suspect]
     Indication: MULTIPLE SCLEROSIS
     Route: 042
     Dates: start: 20080327, end: 20091008
  2. TYSABRI [Suspect]
     Indication: MULTIPLE SCLEROSIS
     Route: 042
     Dates: start: 20101230

REACTIONS (7)
  - Asthma [Not Recovered/Not Resolved]
  - Vein disorder [Recovered/Resolved]
  - Asperger^s disorder [Not Recovered/Not Resolved]
  - Sensory disturbance [Not Recovered/Not Resolved]
  - Migraine [Recovered/Resolved]
  - Bronchitis [Recovered/Resolved]
  - Fatigue [Recovered/Resolved]
